FAERS Safety Report 14971547 (Version 1)
Quarter: 2018Q2

REPORT INFORMATION
  Report Type: Spontaneous
  Country: US (occurrence: US)
  Receive Date: 20180604
  Receipt Date: 20180604
  Transmission Date: 20180711
  Serious: No
  Sender: FDA-Public Use
  Company Number: US-GLAXOSMITHKLINE-US2018GSK097975

PATIENT
  Sex: Female
  Weight: 60.32 kg

DRUGS (2)
  1. BENLYSTA [Suspect]
     Active Substance: BELIMUMAB
     Indication: SYSTEMIC LUPUS ERYTHEMATOSUS
     Dosage: 620 MG, UNK
     Route: 042
     Dates: start: 20171101
  2. BENLYSTA [Suspect]
     Active Substance: BELIMUMAB
     Dosage: 605 MG, UNK
     Route: 042

REACTIONS (1)
  - Weight decreased [Unknown]
